FAERS Safety Report 16709397 (Version 1)
Quarter: 2019Q3

REPORT INFORMATION
  Report Type: Spontaneous
  Country: CN (occurrence: CN)
  Receive Date: 20190816
  Receipt Date: 20190816
  Transmission Date: 20191004
  Serious: Yes (Death, Other)
  Sender: FDA-Public Use
  Company Number: CN-ACCORD-151187

PATIENT
  Age: 60 Year
  Sex: Male

DRUGS (2)
  1. PACLITAXEL. [Suspect]
     Active Substance: PACLITAXEL
     Indication: HEPATIC CANCER
     Dosage: ONCE IN THE FIRST MONTH AFTER SURGERY
  2. CARBOPLATIN. [Suspect]
     Active Substance: CARBOPLATIN
     Indication: HEPATIC CANCER
     Dosage: ONCE IN THE FIRST MONTH AFTER SURGERY

REACTIONS (1)
  - Adverse drug reaction [Unknown]
